FAERS Safety Report 8871880 (Version 1)
Quarter: 2012Q4

REPORT INFORMATION
  Report Type: 
  Country: US (occurrence: US)
  Receive Date: 20121026
  Receipt Date: 20121026
  Transmission Date: 20130627
  Serious: No
  Sender: FDA-Public Use
  Company Number: US-AMGEN-USASP2012048822

PATIENT
  Age: 72 Year
  Sex: Female
  Weight: 81.63 kg

DRUGS (4)
  1. ENBREL [Suspect]
     Indication: PRODUCT USED FOR UNKNOWN INDICATION
     Dosage: 25 mg, 2 times/wk
     Route: 058
  2. CENTRUM SILVER                     /02363801/ [Concomitant]
     Dosage: UNK
     Route: 048
  3. TRILIPIX [Concomitant]
     Dosage: 45 mg, UNK
     Route: 048
  4. EXFORGE [Concomitant]
     Dosage: 5-160 mg
     Route: 048

REACTIONS (1)
  - Lower respiratory tract infection [Recovered/Resolved]
